FAERS Safety Report 24887178 (Version 1)
Quarter: 2025Q1

REPORT INFORMATION
  Report Type: Report from Study
  Country: ES (occurrence: ES)
  Receive Date: 20250127
  Receipt Date: 20250127
  Transmission Date: 20250408
  Serious: Yes (Death, Other)
  Sender: ABBVIE
  Company Number: ES-JNJFOC-20250162751

PATIENT

DRUGS (1)
  1. IBRUTINIB [Suspect]
     Active Substance: IBRUTINIB
     Indication: Chronic lymphocytic leukaemia
     Route: 048

REACTIONS (11)
  - Death [Fatal]
  - Cholestasis [Unknown]
  - Neuromuscular toxicity [Unknown]
  - Pancytopenia [Unknown]
  - Disease progression [Unknown]
  - Diarrhoea [Unknown]
  - Bronchitis [Unknown]
  - Haematotoxicity [Unknown]
  - Colitis ischaemic [Unknown]
  - Haemorrhage [Unknown]
  - Neoplasm [Unknown]
